FAERS Safety Report 13136624 (Version 1)
Quarter: 2017Q1

REPORT INFORMATION
  Report Type: Spontaneous
  Country: US (occurrence: US)
  Receive Date: 20170123
  Receipt Date: 20170123
  Transmission Date: 20170428
  Serious: No
  Sender: FDA-Public Use
  Company Number: US-DEXPHARM-20160423

PATIENT
  Age: 56 Year
  Sex: Female
  Weight: 104.31 kg

DRUGS (2)
  1. OMEPRAZOLE 20 MG GASTRO-RESISTANT TABLETS [Suspect]
     Active Substance: OMEPRAZOLE
     Indication: DYSPEPSIA
     Dosage: 20 MG, QD
     Route: 048
     Dates: start: 201601, end: 201603
  2. LEVOTHYROXINE. [Concomitant]
     Active Substance: LEVOTHYROXINE
     Indication: THYROID DISORDER
     Dosage: UNK
     Route: 048
     Dates: start: 2002

REACTIONS (2)
  - Dyspepsia [None]
  - Condition aggravated [Recovered/Resolved]

NARRATIVE: CASE EVENT DATE: 201601
